FAERS Safety Report 24265225 (Version 1)
Quarter: 2024Q3

REPORT INFORMATION
  Report Type: Report from Study
  Country: TH (occurrence: TH)
  Receive Date: 20240829
  Receipt Date: 20240829
  Transmission Date: 20241016
  Serious: Yes (Death, Other)
  Sender: ELI LILLY AND CO
  Company Number: TH-ELI_LILLY_AND_COMPANY-TH202408016294

PATIENT
  Age: 67 Year
  Sex: Female

DRUGS (2)
  1. ABEMACICLIB [Suspect]
     Active Substance: ABEMACICLIB
     Indication: Hormone receptor positive breast cancer
     Dosage: 150 MG, BID
     Route: 048
     Dates: start: 20231002, end: 202310
  2. ABEMACICLIB [Suspect]
     Active Substance: ABEMACICLIB
     Indication: Human epidermal growth factor receptor negative

REACTIONS (4)
  - Jaundice [Fatal]
  - Malignant neoplasm progression [Fatal]
  - Red blood cell count decreased [Recovering/Resolving]
  - Spinal cord disorder [Unknown]

NARRATIVE: CASE EVENT DATE: 20231001
